FAERS Safety Report 10746616 (Version 1)
Quarter: 2015Q1

REPORT INFORMATION
  Report Type: Spontaneous
  Country: FR (occurrence: FR)
  Receive Date: 20150128
  Receipt Date: 20150128
  Transmission Date: 20150721
  Serious: Yes (Other)
  Sender: FDA-Public Use
  Company Number: FR-GLAXOSMITHKLINE INC.-FR2015GSK009149

PATIENT
  Age: 51 Year
  Sex: Male

DRUGS (2)
  1. INTERFERON NOS [Concomitant]
     Active Substance: INTERFERON
     Dosage: UNK
  2. TAFINLAR [Suspect]
     Active Substance: DABRAFENIB MESYLATE
     Indication: METASTATIC MALIGNANT MELANOMA
     Dosage: 1 DF, BID
     Route: 048
     Dates: start: 20140217

REACTIONS (2)
  - Tendon pain [Unknown]
  - Periarthritis [Unknown]

NARRATIVE: CASE EVENT DATE: 201412
